FAERS Safety Report 19786638 (Version 1)
Quarter: 2021Q3

REPORT INFORMATION
  Report Type: Spontaneous
  Country: US (occurrence: US)
  Receive Date: 20210903
  Receipt Date: 20210903
  Transmission Date: 20211014
  Serious: No
  Sender: FDA-Public Use
  Company Number: US-ASTRAZENECA-2021A699373

PATIENT
  Sex: Female
  Weight: 49.9 kg

DRUGS (1)
  1. FASENRA [Suspect]
     Active Substance: BENRALIZUMAB
     Indication: ASTHMA
     Dosage: EVERY FOUR WEEKS
     Route: 058
     Dates: start: 202106

REACTIONS (5)
  - Back pain [Unknown]
  - Pain [Unknown]
  - Joint effusion [Unknown]
  - Arthralgia [Unknown]
  - Gait inability [Unknown]
